FAERS Safety Report 10496692 (Version 3)
Quarter: 2016Q1

REPORT INFORMATION
  Report Type: Report from Study
  Country: US (occurrence: US)
  Receive Date: 20141006
  Receipt Date: 20160204
  Transmission Date: 20160525
  Serious: Yes (Disabling, Other)
  Sender: FDA-Public Use
  Company Number: US-ROCHE-1453354

PATIENT
  Age: 39 Year
  Sex: Female
  Weight: 120 kg

DRUGS (14)
  1. VERAPAMIL [Concomitant]
     Active Substance: VERAPAMIL HYDROCHLORIDE
  2. AMITIZA [Concomitant]
     Active Substance: LUBIPROSTONE
  3. VENLAFAXINE [Concomitant]
     Active Substance: VENLAFAXINE HYDROCHLORIDE
  4. XOLAIR [Suspect]
     Active Substance: OMALIZUMAB
     Route: 058
     Dates: start: 20140502, end: 20140502
  5. ASTEPRO [Concomitant]
     Active Substance: AZELASTINE HYDROCHLORIDE
     Indication: RHINITIS ALLERGIC
     Dosage: 2 SPRAY
     Route: 045
  6. DULERA [Concomitant]
     Active Substance: FORMOTEROL FUMARATE DIHYDRATE\MOMETASONE FUROATE
     Indication: ASTHMA
     Dosage: 2 PUFF
     Route: 045
  7. CLONAZEPAM. [Concomitant]
     Active Substance: CLONAZEPAM
  8. BACTRIM [Suspect]
     Active Substance: SULFAMETHOXAZOLE\TRIMETHOPRIM
     Indication: PRODUCT USED FOR UNKNOWN INDICATION
     Route: 065
  9. NEULASTA [Concomitant]
     Active Substance: PEGFILGRASTIM
     Route: 065
  10. TRAMADOL. [Concomitant]
     Active Substance: TRAMADOL
  11. XOLAIR [Suspect]
     Active Substance: OMALIZUMAB
     Indication: ASTHMA
     Route: 058
     Dates: start: 20140430, end: 20140430
  12. PROAIR HFA [Concomitant]
     Active Substance: ALBUTEROL SULFATE
     Indication: ASTHMA
     Dosage: 2 PUFF
     Route: 055
  13. FLONASE (UNITED STATES) [Concomitant]
     Indication: RHINITIS ALLERGIC
     Dosage: 2 SPRAY/NOSTRIL
     Route: 065
  14. FLUTICASONE [Concomitant]
     Active Substance: FLUTICASONE\FLUTICASONE PROPIONATE
     Indication: MULTIPLE ALLERGIES
     Route: 045

REACTIONS (19)
  - Dysphagia [Recovered/Resolved]
  - Insomnia [Recovered/Resolved]
  - Paranasal sinus discomfort [Recovered/Resolved]
  - Pharyngeal oedema [Recovered/Resolved]
  - Headache [Recovered/Resolved]
  - Tinnitus [Recovered/Resolved]
  - Erythema [Recovered/Resolved]
  - Palpitations [Recovered/Resolved]
  - Drug hypersensitivity [Unknown]
  - Sinus headache [Recovered/Resolved]
  - Blister [Recovered/Resolved]
  - Neck pain [Recovered/Resolved]
  - Post lumbar puncture syndrome [Recovered/Resolved]
  - Musculoskeletal pain [Recovered/Resolved]
  - Pain in extremity [Not Recovered/Not Resolved]
  - Hypoacusis [Unknown]
  - Arthralgia [Recovered/Resolved]
  - Oropharyngeal pain [Recovered/Resolved]
  - White blood cell count increased [Recovered/Resolved]

NARRATIVE: CASE EVENT DATE: 20140430
